FAERS Safety Report 12983465 (Version 1)
Quarter: 2016Q4

REPORT INFORMATION
  Report Type: Spontaneous
  Country: US (occurrence: US)
  Receive Date: 20161129
  Receipt Date: 20161129
  Transmission Date: 20170207
  Serious: Yes (Disabling)
  Sender: FDA-Public Use
  Company Number: None

PATIENT
  Age: 57 Year
  Sex: Female
  Weight: 62.1 kg

DRUGS (1)
  1. PICATO [Suspect]
     Active Substance: INGENOL MEBUTATE
     Indication: DERMATITIS PAPILLARIS CAPILLITII
     Dosage: QUANTITY:1 TOPICAL GEL; DAILY; TOPICAL ?
     Route: 061
     Dates: start: 20161125, end: 20161127

REACTIONS (4)
  - Swelling [None]
  - Blister [None]
  - Wound secretion [None]
  - Unevaluable event [None]

NARRATIVE: CASE EVENT DATE: 20161128
